FAERS Safety Report 8882683 (Version 1)
Quarter: 2012Q4

REPORT INFORMATION
  Report Type: 
  Country: CA (occurrence: CA)
  Receive Date: 20121105
  Receipt Date: 20121105
  Transmission Date: 20130627
  Serious: Yes (Death)
  Sender: FDA-Public Use
  Company Number: CA-JNJFOC-20121100022

PATIENT

DRUGS (5)
  1. DOXORUBICIN [Suspect]
     Indication: NEPHROBLASTOMA
     Route: 042
  2. VINCRISTINE [Suspect]
     Indication: NEPHROBLASTOMA
     Route: 065
  3. DACTINOMYCIN [Suspect]
     Indication: NEPHROBLASTOMA
     Route: 065
  4. RADIOTHERAPY [Suspect]
     Indication: NEPHROBLASTOMA
     Dosage: abdominal
     Route: 065
  5. RADIOTHERAPY [Suspect]
     Indication: NEPHROBLASTOMA
     Dosage: 1200 cGy bilateral pulmonary
     Route: 065

REACTIONS (4)
  - Death [Fatal]
  - Nephroblastoma [Fatal]
  - Toxicity to various agents [Fatal]
  - Off label use [Unknown]
